FAERS Safety Report 17911838 (Version 1)
Quarter: 2020Q2

REPORT INFORMATION
  Report Type: Spontaneous
  Country: US (occurrence: US)
  Receive Date: 20200618
  Receipt Date: 20200618
  Transmission Date: 20200714
  Serious: No
  Sender: FDA-Public Use
  Company Number: None

PATIENT
  Age: 63 Year
  Sex: Male
  Weight: 69 kg

DRUGS (1)
  1. YESCARTA [Suspect]
     Active Substance: AXICABTAGENE CILOLEUCEL
     Indication: DIFFUSE LARGE B-CELL LYMPHOMA
     Dates: start: 20200511, end: 20200511

REACTIONS (7)
  - Blood pressure decreased [None]
  - Syncope [None]
  - Cardio-respiratory arrest [None]
  - Presyncope [None]
  - Fall [None]
  - Dizziness [None]
  - Pyrexia [None]

NARRATIVE: CASE EVENT DATE: 20200516
